FAERS Safety Report 8880464 (Version 2)
Quarter: 2012Q4

REPORT INFORMATION
  Report Type: 
  Country: JP (occurrence: JP)
  Receive Date: 20121031
  Receipt Date: 20121116
  Transmission Date: 20130627
  Serious: Yes (Hospitalization)
  Sender: FDA-Public Use
  Company Number: JP-MERCK-1210JPN013198

PATIENT
  Age: 74 Year
  Sex: Male

DRUGS (5)
  1. GLACTIV [Suspect]
     Indication: TYPE 2 DIABETES MELLITUS
     Dosage: 100 mg, qd
     Route: 048
     Dates: start: 20110208, end: 20120214
  2. ACTOS [Suspect]
     Route: 048
  3. AMARYL [Concomitant]
  4. STARSIS [Concomitant]
  5. MELBIN [Concomitant]

REACTIONS (1)
  - Bladder cancer [Unknown]
